FAERS Safety Report 16711230 (Version 1)
Quarter: 2019Q4

REPORT INFORMATION
  Report Type: Spontaneous
  Country: US (occurrence: US)
  Receive Date: 20190816
  Receipt Date: 20190816
  Transmission Date: 20200122
  Serious: Yes (Life-Threatening, Hospitalization, Disabling)
  Sender: FDA-Public Use
  Company Number: None

PATIENT
  Age: 54 Year
  Sex: Female
  Weight: 68.4 kg

DRUGS (3)
  1. EQUATE HAIR REGROWTH TREATMENT [Suspect]
     Active Substance: MINOXIDIL
     Indication: ALOPECIA
     Route: 061
     Dates: start: 20100813, end: 20190515
  2. MULTIVITAMINS [Concomitant]
     Active Substance: VITAMINS
  3. FORMULA 503 HERBAL SUPPLMENT [Concomitant]

REACTIONS (6)
  - Psychotic disorder [None]
  - Hypertension [None]
  - Hallucination, auditory [None]
  - Rheumatoid factor increased [None]
  - Retinal detachment [None]
  - Photopsia [None]

NARRATIVE: CASE EVENT DATE: 20190515
